FAERS Safety Report 9729780 (Version 2)
Quarter: 2013Q4

REPORT INFORMATION
  Report Type: Report from Study
  Country: FR (occurrence: FR)
  Receive Date: 20131204
  Receipt Date: 20131204
  Transmission Date: 20140711
  Serious: Yes (Life-Threatening, Hospitalization, Other)
  Sender: FDA-Public Use
  Company Number: FR-EXELIXIS-XL18413003661

PATIENT
  Age: 74 Year
  Sex: Male
  Weight: 67.2 kg

DRUGS (15)
  1. XL184 [Suspect]
     Indication: PROSTATE CANCER
     Dosage: 60 MG, QD
     Route: 048
     Dates: start: 20130731, end: 20130911
  2. XL184 [Suspect]
     Dosage: 20 MG, QD
     Route: 048
     Dates: start: 20130918, end: 20131113
  3. PLACEBO - P [Suspect]
     Indication: PROSTATE CANCER
     Dosage: 5 MG, BID
     Route: 048
     Dates: start: 20130731, end: 20130911
  4. PLACEBO - P [Suspect]
     Dosage: 5 MG, BID
     Route: 048
     Dates: start: 20130918, end: 20131113
  5. PREDNISONE [Concomitant]
  6. ENANTONE [Concomitant]
  7. ATARAX [Concomitant]
  8. NUTRITIONAL SUPPLEMENT [Concomitant]
  9. AMLOR [Concomitant]
  10. MOPRAL [Concomitant]
  11. LEVOTHYROX [Concomitant]
  12. MACROGOL [Concomitant]
  13. MOTILIUM [Concomitant]
  14. PARACETAMOL [Concomitant]
  15. TOPALGIC [Concomitant]

REACTIONS (5)
  - Febrile neutropenia [Recovered/Resolved]
  - Osteonecrosis of jaw [Not Recovered/Not Resolved]
  - Periorbital cellulitis [Recovered/Resolved]
  - Subcutaneous abscess [Recovered/Resolved]
  - Sepsis [Recovered/Resolved]
